FAERS Safety Report 22530765 (Version 3)
Quarter: 2023Q4

REPORT INFORMATION
  Report Type: Spontaneous
  Country: US (occurrence: US)
  Receive Date: 20230607
  Receipt Date: 20231109
  Transmission Date: 20240109
  Serious: Yes (Other)
  Sender: FDA-Public Use
  Company Number: US-JNJFOC-20230609495

PATIENT
  Age: 4 Year
  Sex: Female

DRUGS (5)
  1. TYLENOL REGULAR STRENGTH [Suspect]
     Active Substance: ACETAMINOPHEN
     Indication: Ligament pain
     Route: 064
     Dates: start: 201506, end: 201603
  2. TYLENOL EXTRA STRENGTH [Suspect]
     Active Substance: ACETAMINOPHEN
     Indication: Ligament pain
     Dosage: 7 OR MORE TIMES PER WEEK
     Route: 064
     Dates: start: 201506, end: 201603
  3. TYLENOL EXTRA STRENGTH [Suspect]
     Active Substance: ACETAMINOPHEN
     Indication: Ligament pain
     Dosage: 7 OR MORE TIMES PER WEEK
     Route: 064
     Dates: start: 201506, end: 201603
  4. ACETAMINOPHEN [Suspect]
     Active Substance: ACETAMINOPHEN
     Indication: Ligament pain
     Dosage: LIGAMENT PAIN
     Route: 064
     Dates: start: 201506, end: 201603
  5. ACETAMINOPHEN [Suspect]
     Active Substance: ACETAMINOPHEN
     Indication: Ligament pain
     Dosage: LIGAMENT PAIN
     Route: 064
     Dates: start: 201506, end: 201603

REACTIONS (2)
  - Autism spectrum disorder [Unknown]
  - Foetal exposure during pregnancy [Unknown]

NARRATIVE: CASE EVENT DATE: 20200701
